FAERS Safety Report 8845359 (Version 1)
Quarter: 2012Q4

REPORT INFORMATION
  Report Type: 
  Country: US (occurrence: US)
  Receive Date: 20121017
  Receipt Date: 20121017
  Transmission Date: 20130627
  Serious: No
  Sender: FDA-Public Use
  Company Number: US-009507513-1210USA006565

PATIENT
  Sex: Male

DRUGS (1)
  1. CORICIDIN HBP COUGH AND COLD [Suspect]
     Indication: NASOPHARYNGITIS
     Dosage: UNK, qd
     Route: 048
     Dates: start: 201207

REACTIONS (3)
  - Bronchitis [Unknown]
  - Condition aggravated [Unknown]
  - Drug ineffective [Unknown]
